FAERS Safety Report 6564299-8 (Version None)
Quarter: 2010Q1

REPORT INFORMATION
  Report Type: 
  Country: None (occurrence: None)
  Receive Date: 20100201
  Receipt Date: 20100122
  Transmission Date: 20100710
  Serious: Yes (Other)
  Sender: FDA-Public Use
  Company Number: DE-WYE-G05351710

PATIENT
  Age: 89 Year
  Sex: Male

DRUGS (1)
  1. TREVILOR [Suspect]
     Indication: DEPRESSION
     Route: 048
     Dates: start: 20080901, end: 20080901

REACTIONS (1)
  - HYPERTENSIVE CRISIS [None]
